FAERS Safety Report 5341526-6 (Version None)
Quarter: 2007Q2

REPORT INFORMATION
  Report Type: 
  Country: None (occurrence: None)
  Receive Date: 20070529
  Receipt Date: 20070529
  Transmission Date: 20071010
  Serious: Yes (Hospitalization)
  Sender: FDA-Public Use
  Company Number: None

PATIENT
  Sex: Female
  Weight: 62.1428 kg

DRUGS (2)
  1. PEMETREXED LILLY [Suspect]
     Indication: NON-SMALL CELL LUNG CANCER
     Dosage: 500MG/M2 Q 21D, D1 IV
     Route: 042
     Dates: start: 20070516, end: 20070516
  2. BORTIZOMIB MILLENIUM PHARMACEUTICALS [Suspect]
     Indication: NON-SMALL CELL LUNG CANCER
     Dosage: 1.0MG/M2 D1, D8 Q21D IV
     Route: 042
     Dates: start: 20070516, end: 20070516

REACTIONS (4)
  - DRUG TOXICITY [None]
  - HYPOXIA [None]
  - INFECTION [None]
  - PNEUMONIA [None]
